FAERS Safety Report 5930509-0 (Version None)
Quarter: 2008Q4

REPORT INFORMATION
  Report Type: 
  Country: None (occurrence: None)
  Receive Date: 20081026
  Receipt Date: 20081016
  Transmission Date: 20090506
  Serious: Yes (Other)
  Sender: FDA-Public Use
  Company Number: PHHY2008BR25051

PATIENT
  Age: 21 Year
  Sex: Female
  Weight: 50 kg

DRUGS (2)
  1. PARLODEL [Suspect]
     Dosage: 2.5 MG, UNK
     Route: 048
     Dates: start: 20081005
  2. CEFALEXIN [Concomitant]
     Dosage: 500 MG, Q8H
     Route: 048
     Dates: start: 20081002, end: 20081013

REACTIONS (8)
  - COLD SWEAT [None]
  - FAECAL INCONTINENCE [None]
  - FATIGUE [None]
  - PALLOR [None]
  - SPEECH DISORDER [None]
  - SYNCOPE [None]
  - TONGUE DISORDER [None]
  - VOMITING [None]
